FAERS Safety Report 8243534-4 (Version None)
Quarter: 2012Q1

REPORT INFORMATION
  Report Type: 
  Country: None (occurrence: None)
  Receive Date: 20120329
  Receipt Date: 20120326
  Transmission Date: 20120608
  Serious: Yes (Hospitalization, Other)
  Sender: FDA-Public Use
  Company Number: PHHY2012FR026242

PATIENT
  Age: 87 Year
  Sex: Female

DRUGS (1)
  1. ZOLEDRONOC ACID [Suspect]
     Indication: OSTEOPOROSIS
     Route: 042
     Dates: start: 20120111

REACTIONS (9)
  - SYNCOPE [None]
  - BUNDLE BRANCH BLOCK LEFT [None]
  - ARRHYTHMIA [None]
  - FALL [None]
  - DISORIENTATION [None]
  - MUSCULOSKELETAL PAIN [None]
  - CARDIAC FAILURE [None]
  - ATRIOVENTRICULAR BLOCK FIRST DEGREE [None]
  - DYSSTASIA [None]
